FAERS Safety Report 7049585-X (Version None)
Quarter: 2010Q4

REPORT INFORMATION
  Report Type: 
  Country: None (occurrence: None)
  Receive Date: 20101018
  Receipt Date: 20100201
  Transmission Date: 20110411
  Serious: No
  Sender: FDA-Public Use
  Company Number: US-BAYER-201013172NA

PATIENT
  Age: 32 Year
  Sex: Female

DRUGS (3)
  1. MIRENA [Suspect]
     Indication: CONTRACEPTION
     Dosage: FREQUENCY: CONTINUOUS
     Route: 015
  2. MIRENA [Suspect]
     Dosage: FREQUENCY: CONTINUOUS
     Route: 015
     Dates: start: 20091215, end: 20100111
  3. MIRENA [Suspect]
     Dosage: FREQUENCY: CONTINUOUS
     Route: 015

REACTIONS (1)
  - DEVICE EXPULSION [None]
